FAERS Safety Report 18984055 (Version 3)
Quarter: 2023Q2

REPORT INFORMATION
  Report Type: Spontaneous
  Country: US (occurrence: US)
  Receive Date: 20210309
  Receipt Date: 20230419
  Transmission Date: 20230721
  Serious: Yes (Hospitalization, Other)
  Sender: FDA-Public Use
  Company Number: US-GILEAD-2021-0519274

PATIENT
  Sex: Female
  Weight: 61.224 kg

DRUGS (83)
  1. TRUVADA [Suspect]
     Active Substance: EMTRICITABINE\TENOFOVIR DISOPROXIL FUMARATE
     Indication: HIV infection
     Dosage: UNK
     Route: 048
     Dates: end: 20100805
  2. VIREAD [Suspect]
     Active Substance: TENOFOVIR DISOPROXIL FUMARATE
     Indication: HIV infection
     Dosage: UNK
     Route: 065
     Dates: end: 2008
  3. INTELENCE [Concomitant]
     Active Substance: ETRAVIRINE
  4. ISENTRESS [Concomitant]
     Active Substance: RALTEGRAVIR POTASSIUM
  5. JULUCA [Concomitant]
     Active Substance: DOLUTEGRAVIR SODIUM\RILPIVIRINE HYDROCHLORIDE
  6. NORVIR [Concomitant]
     Active Substance: RITONAVIR
  7. PREZISTA [Concomitant]
     Active Substance: DARUNAVIR ETHANOLATE
  8. CALCIUM [Concomitant]
     Active Substance: CALCIUM
  9. AZULFIDINE [Concomitant]
     Active Substance: SULFASALAZINE
  10. ACYCLOVIR [Concomitant]
     Active Substance: ACYCLOVIR
  11. ADVAIR HFA [Concomitant]
     Active Substance: FLUTICASONE PROPIONATE\SALMETEROL XINAFOATE
  12. AMOXICILLIN [Concomitant]
     Active Substance: AMOXICILLIN
  13. VITAMIN B COMPLEX [Concomitant]
     Active Substance: CYANOCOBALAMIN\DEXPANTHENOL\NIACINAMIDE\PYRIDOXINE HYDROCHLORIDE\RIBOFLAVIN 5^-PHOSPHATE SODIUM\THIA
  14. BENZONATATE [Concomitant]
     Active Substance: BENZONATATE
  15. BIOTIN [Concomitant]
     Active Substance: BIOTIN
  16. BREO ELLIPTA [Concomitant]
     Active Substance: FLUTICASONE FUROATE\VILANTEROL TRIFENATATE
  17. CEFDINIR [Concomitant]
     Active Substance: CEFDINIR
  18. CELEBREX [Concomitant]
     Active Substance: CELECOXIB
  19. CEPHALEXIN [Concomitant]
     Active Substance: CEPHALEXIN
  20. CIPROFLOXACIN [Concomitant]
     Active Substance: CIPROFLOXACIN
  21. CLARINEX [Concomitant]
     Active Substance: DESLORATADINE
  22. DEXILANT [Concomitant]
     Active Substance: DEXLANSOPRAZOLE
  23. DIPHENOXYLATE [Concomitant]
     Active Substance: DIPHENOXYLATE
  24. DOXYCYCLINE [Concomitant]
     Active Substance: DOXYCYCLINE
  25. EZETIMIBE [Concomitant]
     Active Substance: EZETIMIBE
  26. FAMOTIDINE [Concomitant]
     Active Substance: FAMOTIDINE
  27. FEXOFENADINE [Concomitant]
     Active Substance: FEXOFENADINE HYDROCHLORIDE
  28. FLUCONAZOLE [Concomitant]
     Active Substance: FLUCONAZOLE
  29. FLUTICASONE [Concomitant]
     Active Substance: FLUTICASONE
  30. FOLIC ACID [Concomitant]
     Active Substance: FOLIC ACID
  31. FUROSEMIDE [Concomitant]
     Active Substance: FUROSEMIDE
  32. GABAPENTIN [Concomitant]
     Active Substance: GABAPENTIN
  33. HYDROXYCHLOROQUINE [Concomitant]
     Active Substance: HYDROXYCHLOROQUINE
  34. KLOR-CON [Concomitant]
     Active Substance: POTASSIUM CHLORIDE
  35. LACTASE [Concomitant]
     Active Substance: LACTASE
  36. LANSOPRAZOLE [Concomitant]
     Active Substance: LANSOPRAZOLE
  37. LEVAQUIN [Concomitant]
     Active Substance: LEVOFLOXACIN
  38. LEVETIRACETAM [Concomitant]
     Active Substance: LEVETIRACETAM
  39. LEVOFLOXACIN [Concomitant]
     Active Substance: LEVOFLOXACIN
  40. LEVOTHYROXINE [Concomitant]
     Active Substance: LEVOTHYROXINE
  41. LOPERAMIDE HYDROCHLORIDE [Concomitant]
     Active Substance: LOPERAMIDE HYDROCHLORIDE
  42. LOPERAMIDE [Concomitant]
     Active Substance: LOPERAMIDE
  43. LORATADINE [Concomitant]
     Active Substance: LORATADINE
  44. METOCLOPRAMIDE [Concomitant]
     Active Substance: METOCLOPRAMIDE
  45. MODAFINIL [Concomitant]
     Active Substance: MODAFINIL
  46. MONTELUKAST [Concomitant]
     Active Substance: MONTELUKAST SODIUM
  47. NARATRIPTAN [Concomitant]
     Active Substance: NARATRIPTAN HYDROCHLORIDE
  48. NASONEX [Concomitant]
     Active Substance: MOMETASONE FUROATE
  49. NEOMYCIN [Concomitant]
     Active Substance: NEOMYCIN
  50. NITROFURANTOIN [Concomitant]
     Active Substance: NITROFURANTOIN
  51. NUCYNTA [Concomitant]
     Active Substance: TAPENTADOL HYDROCHLORIDE
  52. NYSTATIN [Concomitant]
     Active Substance: NYSTATIN
  53. OFLOXACIN [Concomitant]
     Active Substance: OFLOXACIN
  54. ONDANSETRON [Concomitant]
     Active Substance: ONDANSETRON
  55. VITAMINS NOS [Concomitant]
     Active Substance: VITAMINS
  56. PANTOPRAZOLE [Concomitant]
     Active Substance: PANTOPRAZOLE
  57. POTASSIUM [Concomitant]
     Active Substance: POTASSIUM
  58. PREDNISOLONE [Concomitant]
     Active Substance: PREDNISOLONE
  59. PREDNISONE [Concomitant]
     Active Substance: PREDNISONE
  60. PROMETHAZINE [Concomitant]
     Active Substance: PROMETHAZINE HYDROCHLORIDE
  61. PROPRANOLOL [Concomitant]
     Active Substance: PROPRANOLOL HYDROCHLORIDE
  62. RANITIDINE [Concomitant]
     Active Substance: RANITIDINE
  63. REGLAN [Concomitant]
     Active Substance: METOCLOPRAMIDE HYDROCHLORIDE
  64. ROPINIROLE [Concomitant]
     Active Substance: ROPINIROLE
  65. SEREVENT DISKUS [Concomitant]
     Active Substance: SALMETEROL XINAFOATE
  66. SILVER SULFADIAZINE [Concomitant]
     Active Substance: SILVER SULFADIAZINE
  67. SINGULAIR [Concomitant]
     Active Substance: MONTELUKAST SODIUM
  68. SODIUM CITRATE [Concomitant]
     Active Substance: SODIUM CITRATE
  69. SUCRALFATE [Concomitant]
     Active Substance: SUCRALFATE
  70. SULFAMETHOXAZOLE [Concomitant]
     Active Substance: SULFAMETHOXAZOLE
  71. SYMBICORT [Concomitant]
     Active Substance: BUDESONIDE\FORMOTEROL FUMARATE DIHYDRATE
  72. SYNTHROID [Concomitant]
     Active Substance: LEVOTHYROXINE SODIUM
  73. TOBRAMYCIN [Concomitant]
     Active Substance: TOBRAMYCIN
  74. TRAMADOL [Concomitant]
     Active Substance: TRAMADOL
  75. VITAMIN C [Concomitant]
     Active Substance: ASCORBIC ACID
  76. VITAMIN E [Concomitant]
     Active Substance: .ALPHA.-TOCOPHEROL
  77. WIXELA INHUB [Concomitant]
     Active Substance: FLUTICASONE PROPIONATE\SALMETEROL XINAFOATE
  78. ZETIA [Concomitant]
     Active Substance: EZETIMIBE
  79. ZOLMITRIPTAN [Concomitant]
     Active Substance: ZOLMITRIPTAN
  80. NIZATIDINE [Concomitant]
     Active Substance: NIZATIDINE
  81. VITAMIN D3 [Concomitant]
     Active Substance: CHOLECALCIFEROL
  82. LEVOFLOXACIN [Concomitant]
     Active Substance: LEVOFLOXACIN
  83. FIORICET [Concomitant]
     Active Substance: ACETAMINOPHEN\BUTALBITAL\CAFFEINE

REACTIONS (17)
  - Acute kidney injury [Recovered/Resolved]
  - Rib fracture [Recovered/Resolved]
  - Foot fracture [Recovered/Resolved]
  - Chronic kidney disease [Not Recovered/Not Resolved]
  - Osteoporosis [Not Recovered/Not Resolved]
  - Multiple fractures [Unknown]
  - Rheumatoid arthritis [Not Recovered/Not Resolved]
  - Osteonecrosis [Not Recovered/Not Resolved]
  - Pneumonia [Recovered/Resolved]
  - Foot deformity [Recovered/Resolved]
  - Pain [Not Recovered/Not Resolved]
  - Emotional distress [Not Recovered/Not Resolved]
  - Anxiety [Not Recovered/Not Resolved]
  - Anhedonia [Not Recovered/Not Resolved]
  - Proteinuria [Recovered/Resolved]
  - Anaemia [Not Recovered/Not Resolved]
  - Gait disturbance [Not Recovered/Not Resolved]

NARRATIVE: CASE EVENT DATE: 19900101
